FAERS Safety Report 4579056-1 (Version None)
Quarter: 2005Q1

REPORT INFORMATION
  Report Type: 
  Country: None (occurrence: None)
  Receive Date: 20050127
  Receipt Date: 20040903
  Transmission Date: 20050727
  Serious: No
  Sender: FDA-Public Use
  Company Number: USA040977355

PATIENT
  Age: 7 Year
  Sex: Male
  Weight: 25 kg

DRUGS (1)
  1. STRATTERA [Suspect]
     Indication: AUTISM
     Dosage: 25 MG
     Dates: start: 20040720, end: 20040803

REACTIONS (4)
  - DYSKINESIA [None]
  - EYE MOVEMENT DISORDER [None]
  - INSOMNIA [None]
  - TIC [None]
